FAERS Safety Report 13750079 (Version 3)
Quarter: 2019Q4

REPORT INFORMATION
  Report Type: Spontaneous
  Country: US (occurrence: US)
  Receive Date: 20170713
  Receipt Date: 20191111
  Transmission Date: 20200122
  Serious: Yes (Other)
  Sender: FDA-Public Use
  Company Number: US-ELI_LILLY_AND_COMPANY-US201707001582

PATIENT
  Age: 63 Year
  Sex: Male

DRUGS (4)
  1. CIALIS [Suspect]
     Active Substance: TADALAFIL
     Dosage: UNK
     Route: 065
     Dates: start: 20081130, end: 20081230
  2. VIAGRA [Suspect]
     Active Substance: SILDENAFIL CITRATE
     Indication: ERECTILE DYSFUNCTION
     Dosage: 100 MG, UNKNOWN
     Route: 065
     Dates: start: 20060825, end: 20070315
  3. VIAGRA [Suspect]
     Active Substance: SILDENAFIL CITRATE
     Dosage: UNK
     Route: 065
     Dates: start: 20080825, end: 20080925
  4. CIALIS [Suspect]
     Active Substance: TADALAFIL
     Indication: ERECTILE DYSFUNCTION
     Dosage: UNK UNK, UNKNOWN
     Route: 065
     Dates: start: 20061130, end: 20070328

REACTIONS (1)
  - Malignant melanoma stage II [Unknown]

NARRATIVE: CASE EVENT DATE: 20150227
